FAERS Safety Report 6703613-7 (Version None)
Quarter: 2010Q2

REPORT INFORMATION
  Report Type: 
  Country: None (occurrence: None)
  Receive Date: 20100430
  Receipt Date: 20100426
  Transmission Date: 20101027
  Serious: Yes (Other)
  Sender: FDA-Public Use
  Company Number: ES-BRISTOL-MYERS SQUIBB COMPANY-15063449

PATIENT

DRUGS (1)
  1. PACLITAXEL [Suspect]

REACTIONS (1)
  - MEDICATION ERROR [None]
